FAERS Safety Report 13672127 (Version 1)
Quarter: 2017Q2

REPORT INFORMATION
  Report Type: Spontaneous
  Country: US (occurrence: US)
  Receive Date: 20170620
  Receipt Date: 20170620
  Transmission Date: 20170830
  Serious: Yes (Disabling)
  Sender: FDA-Public Use
  Company Number: None

PATIENT
  Age: 38 Year
  Sex: Female
  Weight: 121.5 kg

DRUGS (6)
  1. FLEXERIL [Concomitant]
     Active Substance: CYCLOBENZAPRINE HYDROCHLORIDE
  2. DAILY MULTIVITAMIN [Concomitant]
     Active Substance: VITAMINS
  3. MAGNESIUM SUPPLEMENTS [Concomitant]
  4. FISH OIL [Concomitant]
     Active Substance: FISH OIL
  5. KLONOPIN [Suspect]
     Active Substance: CLONAZEPAM
     Indication: INSOMNIA
     Dosage: ?          QUANTITY:1 TABLET(S);?
     Route: 048
     Dates: start: 20050501, end: 20161109
  6. ZOFRAN [Concomitant]
     Active Substance: ONDANSETRON HYDROCHLORIDE

REACTIONS (22)
  - Visual acuity reduced [None]
  - Therapy change [None]
  - Hallucination [None]
  - Panic attack [None]
  - Derealisation [None]
  - Gastrointestinal disorder [None]
  - Feeling abnormal [None]
  - Muscle disorder [None]
  - Delirium tremens [None]
  - Akathisia [None]
  - Insomnia [None]
  - Pain [None]
  - Contusion [None]
  - Bone pain [None]
  - Abasia [None]
  - Muscle spasms [None]
  - Visual impairment [None]
  - Neuralgia [None]
  - Heart rate increased [None]
  - Muscle tightness [None]
  - Nausea [None]
  - Drug withdrawal syndrome [None]

NARRATIVE: CASE EVENT DATE: 20160912
